FAERS Safety Report 10780317 (Version 1)
Quarter: 2015Q1

REPORT INFORMATION
  Report Type: Spontaneous
  Country: US (occurrence: US)
  Receive Date: 20150210
  Receipt Date: 20150210
  Transmission Date: 20150721
  Serious: No
  Sender: FDA-Public Use
  Company Number: US-GLAXOSMITHKLINE-A1058044A

PATIENT

DRUGS (2)
  1. NICORETTE FRUIT CHILL [Suspect]
     Active Substance: NICOTINE
     Indication: EX-TOBACCO USER
     Dates: start: 201310, end: 20140119
  2. NICORETTE WHITE ICE MINT [Suspect]
     Active Substance: NICOTINE

REACTIONS (1)
  - Drug ineffective [Unknown]
